FAERS Safety Report 5672393-9 (Version None)
Quarter: 2008Q2

REPORT INFORMATION
  Report Type: 
  Country: None (occurrence: None)
  Receive Date: 20080219
  Receipt Date: 20071101
  Transmission Date: 20081010
  Serious: No
  Sender: FDA-Public Use
  Company Number: TPA2007A02248

PATIENT
  Age: 91 Year
  Sex: Male
  Weight: 81.6475 kg

DRUGS (2)
  1. ROZEREM [Suspect]
     Indication: DRUG WITHDRAWAL SYNDROME
     Dosage: 8 MG, QHS, PER ORAL
     Route: 048
     Dates: start: 20071031, end: 20071101
  2. XANAX [Suspect]
     Indication: SLEEP DISORDER
     Dosage: 2 MG, AS REQUIRED, PER ORAL
     Route: 048
     Dates: start: 20051101

REACTIONS (4)
  - HEADACHE [None]
  - MIDDLE INSOMNIA [None]
  - NIGHTMARE [None]
  - SOMNOLENCE [None]
